FAERS Safety Report 8988132 (Version 1)
Quarter: 2012Q4

REPORT INFORMATION
  Report Type: 
  Country: GB (occurrence: GB)
  Receive Date: 20121227
  Receipt Date: 20121227
  Transmission Date: 20130627
  Serious: Yes (Other)
  Sender: FDA-Public Use
  Company Number: GB-009507513-1212GBR008910

PATIENT
  Age: 46 Year
  Sex: Male

DRUGS (3)
  1. RIBAVIRIN [Suspect]
     Indication: HEPATITIS C
     Dosage: UNK, bid
     Route: 048
     Dates: start: 20120814
  2. PEGINTERFERON ALFA-2B [Suspect]
     Indication: HEPATITIS C
     Dosage: UNK, qw
     Dates: start: 20120814
  3. TELAPREVIR [Suspect]
     Indication: HEPATITIS C
     Dosage: UNK, tid
     Route: 048
     Dates: start: 20120814

REACTIONS (1)
  - Skin fissures [Not Recovered/Not Resolved]
